FAERS Safety Report 8789576 (Version 2)
Quarter: 2012Q4

REPORT INFORMATION
  Report Type: Spontaneous
  Country: US (occurrence: None)
  Receive Date: 20120905
  Receipt Date: 20121018
  Transmission Date: 20130627
  Serious: Yes (Hospitalization)
  Sender: FDA-Public Use
  Company Number: 1208-458

PATIENT
  Age: 82 Year
  Sex: Female
  Weight: 79.38 kg

DRUGS (12)
  1. EYLEA [Suspect]
     Indication: EXUDATIVE SENILE MACULAR DEGENERATIVE OF RETINA
     Dosage: Intravitreal
     Dates: start: 20120621
  2. METFORMIN (METFORMIN) [Concomitant]
  3. DIOVAN HCT (CO-DIOVAN) [Concomitant]
  4. METOPROLOL (METOPROLOL) [Concomitant]
  5. VITAMIN A (RETINOL) [Concomitant]
  6. VITAMIN C (ASCORBIC ACID) [Concomitant]
  7. VITAMIN D (ERGOCALCIFEROL) [Concomitant]
  8. VITAMIN E (TOCOPHEROL) [Concomitant]
  9. CINNAMON WITH CHROMIUM (CINNAMOMUM VERUM) [Concomitant]
  10. CALTRATE [Concomitant]
  11. GLUCOSAMINE WITH CHONDROITIN (GLUCOSAMINE W/CHONDROITIN SULFATE) [Concomitant]
  12. LOPRESSOR (METOPROLOL TARTRATE) [Concomitant]

REACTIONS (3)
  - Dizziness [None]
  - Balance disorder [None]
  - Hypertension [None]
